FAERS Safety Report 6683326-0 (Version None)
Quarter: 2010Q2

REPORT INFORMATION
  Report Type: 
  Country: None (occurrence: None)
  Receive Date: 20100415
  Receipt Date: 20100407
  Transmission Date: 20101027
  Serious: Yes (Other)
  Sender: FDA-Public Use
  Company Number: US-JNJCH-2010008814

PATIENT
  Age: 48 Year
  Sex: Female
  Weight: 49.9 kg

DRUGS (1)
  1. LUBRIDERM ADVANCED THERAPY LOTION [Suspect]
     Indication: DECUBITUS ULCER
     Dosage: TEXT:^QUARTER SIZE^ ONCE
     Route: 061
     Dates: start: 20100406, end: 20100406

REACTIONS (8)
  - APPLICATION SITE BURN [None]
  - APPLICATION SITE ODOUR [None]
  - DRUG HYPERSENSITIVITY [None]
  - DYSPNOEA [None]
  - EYE SWELLING [None]
  - HYPERSENSITIVITY [None]
  - OFF LABEL USE [None]
  - OPEN WOUND [None]
